FAERS Safety Report 20702265 (Version 2)
Quarter: 2022Q3

REPORT INFORMATION
  Report Type: Spontaneous
  Country: US (occurrence: US)
  Receive Date: 20220412
  Receipt Date: 20220726
  Transmission Date: 20221027
  Serious: Yes (Other)
  Sender: FDA-Public Use
  Company Number: US-BRISTOL-MYERS SQUIBB COMPANY-2022-016560

PATIENT
  Age: 79 Year
  Sex: Female
  Weight: 67.131 kg

DRUGS (1)
  1. REVLIMID [Suspect]
     Active Substance: LENALIDOMIDE
     Indication: Plasma cell myeloma
     Dosage: 25 MILLIGRAM?A3773A- EXP: 30-SEP-2024?A3572A- EXP: 31-JAN-2024
     Route: 048
     Dates: start: 20191011

REACTIONS (4)
  - Plasma cell myeloma [Not Recovered/Not Resolved]
  - Dyspepsia [Unknown]
  - Decreased appetite [Unknown]
  - Nausea [Unknown]

NARRATIVE: CASE EVENT DATE: 20220301
